FAERS Safety Report 20634944 (Version 2)
Quarter: 2022Q1

REPORT INFORMATION
  Report Type: Report from Study
  Country: US (occurrence: US)
  Receive Date: 20220325
  Receipt Date: 20220330
  Transmission Date: 20220423
  Serious: No
  Sender: FDA-Public Use
  Company Number: US-NOVARTISTESTPH-NVSC2022US068011

PATIENT

DRUGS (1)
  1. ENTRESTO [Suspect]
     Active Substance: SACUBITRIL\VALSARTAN
     Indication: Pneumonia
     Dosage: UNK
     Route: 065
     Dates: start: 201610

REACTIONS (3)
  - Muscular weakness [Unknown]
  - Illness [Unknown]
  - Product use in unapproved indication [Unknown]
